FAERS Safety Report 24680757 (Version 2)
Quarter: 2024Q4

REPORT INFORMATION
  Report Type: Spontaneous
  Country: US (occurrence: US)
  Receive Date: 20241129
  Receipt Date: 20241203
  Transmission Date: 20250115
  Serious: No
  Sender: BRISTOL-MYERS SQUIBB COMPANY
  Company Number: US-BRISTOL-MYERS SQUIBB COMPANY-2024-186455

PATIENT
  Age: 61 Year
  Sex: Female

DRUGS (3)
  1. YERVOY [Suspect]
     Active Substance: IPILIMUMAB
     Indication: Malignant melanoma
     Dosage: 200MG/40ML
  2. YERVOY [Suspect]
     Active Substance: IPILIMUMAB
     Dosage: 50MG/10ML
  3. OPDIVO [Suspect]
     Active Substance: NIVOLUMAB
     Indication: Malignant melanoma

REACTIONS (1)
  - Rash papular [Not Recovered/Not Resolved]
